FAERS Safety Report 13672119 (Version 2)
Quarter: 2017Q2

REPORT INFORMATION
  Report Type: Report from Study
  Country: US (occurrence: US)
  Receive Date: 20170621
  Receipt Date: 20170622
  Transmission Date: 20170830
  Serious: Yes (Other)
  Sender: FDA-Public Use
  Company Number: US-BIOGEN-2014BI117125

PATIENT
  Age: 44 Year
  Sex: Female

DRUGS (1)
  1. TYSABRI [Suspect]
     Active Substance: NATALIZUMAB
     Indication: MULTIPLE SCLEROSIS
     Route: 042
     Dates: start: 20141024, end: 20141121

REACTIONS (17)
  - Mouth swelling [Unknown]
  - Weight increased [Not Recovered/Not Resolved]
  - Throat tightness [Recovered/Resolved]
  - Feeding disorder [Unknown]
  - Blepharospasm [Recovered/Resolved]
  - Adverse drug reaction [Not Recovered/Not Resolved]
  - Feeling abnormal [Unknown]
  - Discoloured vomit [Recovered/Resolved]
  - Vomiting [Not Recovered/Not Resolved]
  - Oropharyngeal pain [Recovered/Resolved]
  - Dry throat [Recovered/Resolved]
  - Abdominal discomfort [Not Recovered/Not Resolved]
  - Central nervous system lesion [Not Recovered/Not Resolved]
  - Dyspepsia [Unknown]
  - Gingival swelling [Unknown]
  - Peripheral swelling [Unknown]
  - Headache [Recovered/Resolved]

NARRATIVE: CASE EVENT DATE: 2014
